FAERS Safety Report 6287578-0 (Version None)
Quarter: 2009Q3

REPORT INFORMATION
  Report Type: 
  Country: None (occurrence: None)
  Receive Date: 20090727
  Receipt Date: 20090714
  Transmission Date: 20100115
  Serious: Yes (Disabling, Other)
  Sender: FDA-Public Use
  Company Number: US-1170095

PATIENT
  Age: 77 Year
  Sex: Female

DRUGS (11)
  1. NEVANAC [Suspect]
     Indication: EYE SWELLING
     Dosage: 1 GTT OD QID OPHTHALMIC, 1 GTT OD QID OPHTHALMIC, 1 GTT OD BID OPHTHALMIC
     Route: 047
     Dates: start: 20090606, end: 20090616
  2. NEVANAC [Suspect]
     Indication: PROPHYLAXIS
     Dosage: 1 GTT OD QID OPHTHALMIC, 1 GTT OD QID OPHTHALMIC, 1 GTT OD BID OPHTHALMIC
     Route: 047
     Dates: start: 20090606, end: 20090616
  3. NEVANAC [Suspect]
     Indication: EYE SWELLING
     Dosage: 1 GTT OD QID OPHTHALMIC, 1 GTT OD QID OPHTHALMIC, 1 GTT OD BID OPHTHALMIC
     Route: 047
     Dates: start: 20090619, end: 20090626
  4. NEVANAC [Suspect]
     Indication: PROPHYLAXIS
     Dosage: 1 GTT OD QID OPHTHALMIC, 1 GTT OD QID OPHTHALMIC, 1 GTT OD BID OPHTHALMIC
     Route: 047
     Dates: start: 20090619, end: 20090626
  5. NEVANAC [Suspect]
     Indication: EYE SWELLING
     Dosage: 1 GTT OD QID OPHTHALMIC, 1 GTT OD QID OPHTHALMIC, 1 GTT OD BID OPHTHALMIC
     Route: 047
     Dates: start: 20090626, end: 20090707
  6. NEVANAC [Suspect]
     Indication: PROPHYLAXIS
     Dosage: 1 GTT OD QID OPHTHALMIC, 1 GTT OD QID OPHTHALMIC, 1 GTT OD BID OPHTHALMIC
     Route: 047
     Dates: start: 20090626, end: 20090707
  7. OMNIPRED [Concomitant]
  8. DIFLUPREDNATE [Concomitant]
  9. VIGAMOX [Concomitant]
  10. LORATADINE [Concomitant]
  11. CLARITIN [Concomitant]

REACTIONS (12)
  - BLINDNESS UNILATERAL [None]
  - CORNEAL OEDEMA [None]
  - DRUG INEFFECTIVE [None]
  - EYE IRRITATION [None]
  - EYE SWELLING [None]
  - LACRIMATION INCREASED [None]
  - OCULAR HYPERAEMIA [None]
  - PHOTOPHOBIA [None]
  - POST PROCEDURAL COMPLICATION [None]
  - PUPILLARY DISORDER [None]
  - SNEEZING [None]
  - VISION BLURRED [None]
